FAERS Safety Report 22777293 (Version 2)
Quarter: 2024Q1

REPORT INFORMATION
  Report Type: Report from Study
  Country: DE (occurrence: DE)
  Receive Date: 20230802
  Receipt Date: 20240205
  Transmission Date: 20240410
  Serious: No
  Sender: FDA-Public Use
  Company Number: DE-TAKEDA-2023TUS075156

PATIENT
  Sex: Male

DRUGS (21)
  1. ANTIHEMOPHILIC FACTOR, PEGYLATED (MW 20000) HUMAN SEQUENCE RECOMBINANT [Suspect]
     Active Substance: ANTIHEMOPHILIC FACTOR, PEGYLATED (MW 20000) HUMAN SEQUENCE RECOMBINANT
     Indication: Factor VIII deficiency
     Dosage: UNK
     Route: 065
     Dates: start: 20190107
  2. ANTIHEMOPHILIC FACTOR, PEGYLATED (MW 20000) HUMAN SEQUENCE RECOMBINANT [Suspect]
     Active Substance: ANTIHEMOPHILIC FACTOR, PEGYLATED (MW 20000) HUMAN SEQUENCE RECOMBINANT
     Indication: Factor VIII deficiency
     Dosage: UNK
     Route: 065
     Dates: start: 20190107
  3. ANTIHEMOPHILIC FACTOR, PEGYLATED (MW 20000) HUMAN SEQUENCE RECOMBINANT [Suspect]
     Active Substance: ANTIHEMOPHILIC FACTOR, PEGYLATED (MW 20000) HUMAN SEQUENCE RECOMBINANT
     Indication: Factor VIII deficiency
     Dosage: UNK
     Route: 065
     Dates: start: 20190107
  4. ANTIHEMOPHILIC FACTOR, PEGYLATED (MW 20000) HUMAN SEQUENCE RECOMBINANT [Suspect]
     Active Substance: ANTIHEMOPHILIC FACTOR, PEGYLATED (MW 20000) HUMAN SEQUENCE RECOMBINANT
     Dosage: 39.5 INTERNATIONAL UNIT/KILOGRAM, QOD
     Route: 065
     Dates: start: 20211118
  5. ANTIHEMOPHILIC FACTOR, PEGYLATED (MW 20000) HUMAN SEQUENCE RECOMBINANT [Suspect]
     Active Substance: ANTIHEMOPHILIC FACTOR, PEGYLATED (MW 20000) HUMAN SEQUENCE RECOMBINANT
     Dosage: 39.5 INTERNATIONAL UNIT/KILOGRAM, QOD
     Route: 065
     Dates: start: 20211118
  6. ANTIHEMOPHILIC FACTOR, PEGYLATED (MW 20000) HUMAN SEQUENCE RECOMBINANT [Suspect]
     Active Substance: ANTIHEMOPHILIC FACTOR, PEGYLATED (MW 20000) HUMAN SEQUENCE RECOMBINANT
     Dosage: 39.5 INTERNATIONAL UNIT/KILOGRAM, QOD
     Route: 065
     Dates: start: 20211118
  7. EFAVIRENZ [Concomitant]
     Active Substance: EFAVIRENZ
     Indication: HIV infection
     Dosage: 600 MILLIGRAM, QD
     Route: 048
     Dates: start: 2010
  8. EMTRICITABINE [Concomitant]
     Active Substance: EMTRICITABINE
     Indication: HIV infection
     Dosage: 200 MILLIGRAM, QD
     Route: 048
     Dates: start: 2010
  9. TENOFOVIR [Concomitant]
     Active Substance: TENOFOVIR
     Indication: HIV infection
     Dosage: 245 MILLIGRAM, TID
     Route: 048
     Dates: start: 2010
  10. IBUPROFEN [Concomitant]
     Active Substance: IBUPROFEN
     Indication: Haemophilic arthropathy
     Dosage: 600 MILLIGRAM, TID
     Route: 048
     Dates: start: 201010
  11. IBUPROFEN [Concomitant]
     Active Substance: IBUPROFEN
     Indication: Analgesic therapy
     Dosage: 600 MILLIGRAM, TID
     Route: 048
     Dates: start: 20211120, end: 20211227
  12. PANTOPRAZOLE SODIUM [Concomitant]
     Active Substance: PANTOPRAZOLE SODIUM
     Dosage: 20 MILLIGRAM, QD
     Route: 048
     Dates: start: 201010
  13. PANTOPRAZOLE SODIUM [Concomitant]
     Active Substance: PANTOPRAZOLE SODIUM
     Dosage: 40 MILLIGRAM, QD
     Route: 048
     Dates: start: 20211120, end: 20211227
  14. ENOXAPARIN SODIUM [Concomitant]
     Active Substance: ENOXAPARIN SODIUM
     Indication: Thrombosis prophylaxis
     Dosage: 40 MILLIGRAM, QD
     Route: 058
     Dates: start: 20211120, end: 20211227
  15. POLYETHYLENE GLYCOLS [Concomitant]
     Active Substance: POLYETHYLENE GLYCOLS
     Dosage: 1 DOSAGE FORM, QD
     Route: 048
     Dates: start: 20211120, end: 20211227
  16. FERRO-SANOL DUODENAL [Concomitant]
     Active Substance: FERROUS GLYCINE SULFATE
     Indication: Mineral supplementation
     Dosage: 1 DOSAGE FORM, QD
     Route: 048
     Dates: start: 20211120, end: 20211127
  17. POTASSIUM CHLORIDE [Concomitant]
     Active Substance: POTASSIUM CHLORIDE
     Indication: Prophylaxis
     Dosage: 1 DOSAGE FORM, TID
     Route: 048
     Dates: start: 20211120, end: 20211227
  18. VANCOMYCIN [Concomitant]
     Active Substance: VANCOMYCIN
     Indication: Femur fracture
     Dosage: UNK
     Route: 065
     Dates: start: 20211207, end: 20211229
  19. AMOXICILLIN\CLAVULANATE POTASSIUM [Concomitant]
     Active Substance: AMOXICILLIN\CLAVULANATE POTASSIUM
     Indication: Antibiotic therapy
     Dosage: 1 DOSAGE FORM, TID
     Route: 048
     Dates: start: 20211228, end: 20220103
  20. CALCIUM [Concomitant]
     Active Substance: CALCIUM
     Indication: Vitamin D deficiency
     Dosage: 500 MILLIGRAM, BID
     Route: 048
     Dates: start: 202209, end: 202301
  21. CHOLECALCIFEROL [Concomitant]
     Active Substance: CHOLECALCIFEROL
     Indication: Vitamin D deficiency
     Dosage: 400 INTERNATIONAL UNIT, BID
     Route: 048
     Dates: start: 202209, end: 202301

REACTIONS (1)
  - Haematuria [Recovered/Resolved]

NARRATIVE: CASE EVENT DATE: 20230508
